FAERS Safety Report 10172843 (Version 3)
Quarter: 2014Q2

REPORT INFORMATION
  Report Type: Spontaneous
  Country: JP (occurrence: JP)
  Receive Date: 20140515
  Receipt Date: 20140604
  Transmission Date: 20141212
  Serious: Yes (Hospitalization)
  Sender: FDA-Public Use
  Company Number: JP-GLAXOSMITHKLINE-B0988782A

PATIENT
  Age: 70 Year
  Sex: Male

DRUGS (4)
  1. ZANTAC [Suspect]
     Indication: PROPHYLAXIS
     Dosage: 50MG SINGLE DOSE
     Route: 042
     Dates: start: 20120319, end: 20120319
  2. CARBOPLATIN [Suspect]
     Indication: SQUAMOUS CELL CARCINOMA OF LUNG
     Route: 042
     Dates: start: 20120220
  3. PACLITAXEL [Suspect]
     Indication: SQUAMOUS CELL CARCINOMA OF LUNG
     Route: 042
     Dates: start: 20120220
  4. EMEND [Suspect]
     Indication: SQUAMOUS CELL CARCINOMA OF LUNG
     Dosage: 80MG PER DAY
     Route: 048
     Dates: start: 20120319, end: 20120320

REACTIONS (13)
  - Rash [Recovered/Resolved]
  - Toxic epidermal necrolysis [Recovered/Resolved]
  - Pyrexia [Recovered/Resolved]
  - Generalised erythema [Recovered/Resolved]
  - Mucous membrane disorder [Recovered/Resolved]
  - Pruritus [Recovering/Resolving]
  - Erythema [Recovering/Resolving]
  - Macule [Recovering/Resolving]
  - Oral mucosa erosion [Recovering/Resolving]
  - Squamous cell carcinoma of lung [Fatal]
  - Skin exfoliation [Unknown]
  - Conjunctival hyperaemia [Unknown]
  - Tongue coated [Unknown]
